FAERS Safety Report 5914950-8 (Version None)
Quarter: 2008Q4

REPORT INFORMATION
  Report Type: 
  Country: None (occurrence: None)
  Receive Date: 20081010
  Receipt Date: 20081006
  Transmission Date: 20090506
  Serious: Yes (Other)
  Sender: FDA-Public Use
  Company Number: US-AVENTIS-200816630US

PATIENT
  Age: 64 Year
  Sex: Female

DRUGS (1)
  1. LANTUS [Suspect]
     Dosage: DOSE: UNK

REACTIONS (3)
  - BLINDNESS [None]
  - FATIGUE [None]
  - GLAUCOMA [None]
